FAERS Safety Report 9008516 (Version 1)
Quarter: 2013Q1

REPORT INFORMATION
  Report Type: Spontaneous
  Country: DE (occurrence: DE)
  Receive Date: 20130111
  Receipt Date: 20130111
  Transmission Date: 20140127
  Serious: Yes (Death)
  Sender: FDA-Public Use
  Company Number: DE-PFIZER INC-2013010150

PATIENT
  Sex: 0

DRUGS (1)
  1. VIAGRA [Suspect]

REACTIONS (2)
  - Suspected counterfeit product [Fatal]
  - Death [Fatal]
